FAERS Safety Report 12661713 (Version 1)
Quarter: 2016Q3

REPORT INFORMATION
  Report Type: Spontaneous
  Country: US (occurrence: US)
  Receive Date: 20160817
  Receipt Date: 20160817
  Transmission Date: 20161109
  Serious: No
  Sender: FDA-Public Use
  Company Number: US-PFIZER INC-2016390565

PATIENT
  Age: 58 Year
  Sex: Male

DRUGS (2)
  1. ADVIL [Suspect]
     Active Substance: IBUPROFEN
     Indication: PAIN
     Dosage: MAYBE 4 PER WEEK
  2. ADVIL [Suspect]
     Active Substance: IBUPROFEN
     Indication: PAIN
     Dosage: MAYBE 4 PER WEEK

REACTIONS (5)
  - Nervousness [Unknown]
  - Intentional product use issue [Not Recovered/Not Resolved]
  - Oral discomfort [Recovered/Resolved]
  - Product coating issue [Recovered/Resolved]
  - Product taste abnormal [Recovered/Resolved]

NARRATIVE: CASE EVENT DATE: 20160816
